FAERS Safety Report 6267424-1 (Version None)
Quarter: 2009Q3

REPORT INFORMATION
  Report Type: 
  Country: None (occurrence: None)
  Receive Date: 20090714
  Receipt Date: 20090703
  Transmission Date: 20100115
  Serious: Yes (Death, Hospitalization)
  Sender: FDA-Public Use
  Company Number: FR-JNJFOC-20090701458

PATIENT
  Age: 36 Year
  Sex: Male

DRUGS (8)
  1. REMICADE [Suspect]
     Indication: CROHN'S DISEASE
     Route: 042
  2. IMUREL [Suspect]
     Indication: CROHN'S DISEASE
     Route: 048
  3. CORTANCYL [Suspect]
     Indication: CROHN'S DISEASE
     Route: 048
  4. FUNGIZONE [Concomitant]
     Dosage: 1 TEASPOON TID
  5. NEXIUM [Concomitant]
  6. CACIT D3 [Concomitant]
     Dosage: 1 DOSAGE FORM QD
  7. CONTRAMAL [Concomitant]
  8. DOLIPRANE [Concomitant]
     Indication: PAIN
     Dosage: AS NCESSARY

REACTIONS (13)
  - AGITATION [None]
  - BLOOD GLUCOSE ABNORMAL [None]
  - CARDIAC FAILURE [None]
  - CYANOSIS [None]
  - CYTOLYTIC HEPATITIS [None]
  - DIARRHOEA [None]
  - KLEBSIELLA SEPSIS [None]
  - MULTI-ORGAN FAILURE [None]
  - PLATELET COUNT DECREASED [None]
  - RED BLOOD CELL COUNT DECREASED [None]
  - RENAL FAILURE [None]
  - SEPTIC SHOCK [None]
  - WHITE BLOOD CELL COUNT DECREASED [None]
